FAERS Safety Report 21238550 (Version 2)
Quarter: 2022Q3

REPORT INFORMATION
  Report Type: Spontaneous
  Country: US (occurrence: US)
  Receive Date: 20220822
  Receipt Date: 20220830
  Transmission Date: 20221026
  Serious: Yes (Hospitalization, Other)
  Sender: FDA-Public Use
  Company Number: US-BIOVITRUM-2022US08005

PATIENT
  Sex: Male

DRUGS (4)
  1. DOPTELET [Suspect]
     Active Substance: AVATROMBOPAG MALEATE
     Indication: Immune thrombocytopenia
     Dates: start: 202206, end: 202208
  2. DOPTELET [Suspect]
     Active Substance: AVATROMBOPAG MALEATE
     Dates: start: 20220608
  3. TAVALISSE [Concomitant]
     Active Substance: FOSTAMATINIB
     Dates: start: 20220820
  4. PREDNISONE [Suspect]
     Active Substance: PREDNISONE

REACTIONS (12)
  - Platelet count abnormal [Unknown]
  - Haemorrhage [Unknown]
  - Heart rate increased [Unknown]
  - Insomnia [Unknown]
  - Restlessness [Unknown]
  - Tenderness [Unknown]
  - Chest discomfort [Recovered/Resolved]
  - Tremor [Unknown]
  - Daydreaming [Unknown]
  - Adverse event [Unknown]
  - Drug ineffective [Unknown]
  - Therapy non-responder [Unknown]
